FAERS Safety Report 7738517-4 (Version None)
Quarter: 2011Q3

REPORT INFORMATION
  Report Type: 
  Country: None (occurrence: None)
  Receive Date: 20110908
  Receipt Date: 20110825
  Transmission Date: 20111222
  Serious: Yes (Death)
  Sender: FDA-Public Use
  Company Number: JP-ELI_LILLY_AND_COMPANY-JP201108008314

PATIENT
  Age: 85 Year
  Sex: Male

DRUGS (5)
  1. ABILIFY [Concomitant]
     Dosage: UNK
     Route: 048
  2. ASPIRIN [Concomitant]
     Dosage: UNK
  3. CYMBALTA [Suspect]
     Indication: DEPRESSION
     Dosage: 20 MG, QD
     Route: 048
     Dates: start: 20110720
  4. DEPROMEL [Concomitant]
     Dosage: UNK
     Route: 048
  5. ZYPREXA [Concomitant]
     Dosage: UNK
     Route: 048

REACTIONS (1)
  - FALL [None]
